FAERS Safety Report 7620987 (Version 3)
Quarter: 2012Q4

REPORT INFORMATION
  Report Type: 
  Country: US (occurrence: US)
  Receive Date: 20101007
  Receipt Date: 20120918
  Transmission Date: 20130627
  Serious: Yes (Other)
  Sender: FDA-Public Use
  Company Number: US-AMGEN-QUU442199

PATIENT
  Age: 47 Year
  Sex: Male
  Weight: 92.97 kg

DRUGS (1)
  1. NPLATE [Suspect]
     Indication: IDIOPATHIC THROMBOCYTOPENIC PURPURA
     Dosage: 250 mug, UNK
     Route: 058
     Dates: start: 20100121, end: 20100407

REACTIONS (2)
  - Surgery [Unknown]
  - Deep vein thrombosis [Recovered/Resolved]
